FAERS Safety Report 8418331-7 (Version None)
Quarter: 2012Q2

REPORT INFORMATION
  Report Type: 
  Country: None (occurrence: None)
  Receive Date: 20120607
  Receipt Date: 20120531
  Transmission Date: 20120825
  Serious: Yes (Hospitalization, Other)
  Sender: FDA-Public Use
  Company Number: US-NOVOPROD-350200

PATIENT
  Age: 53 Year
  Sex: Female
  Weight: 123.81 kg

DRUGS (15)
  1. VITAMIN B-12 [Concomitant]
     Indication: PRODUCT USED FOR UNKNOWN INDICATION
     Dosage: 1000 MCG, DAILY WITH SUPPER
     Route: 048
  2. LEVEMIR [Concomitant]
     Indication: TYPE 2 DIABETES MELLITUS
     Dosage: 40 U, IN THE MORNING [DOSE TITRATION]
     Route: 058
  3. VICTOZA [Suspect]
     Indication: TYPE 2 DIABETES MELLITUS
     Dosage: 1.8 MG, QD
     Route: 058
     Dates: start: 20110812, end: 20120110
  4. LIPITOR [Concomitant]
     Indication: PRODUCT USED FOR UNKNOWN INDICATION
     Dosage: 40 MG, DAILY
     Route: 048
  5. KLONOPIN [Concomitant]
     Indication: PRODUCT USED FOR UNKNOWN INDICATION
     Dosage: 0.5 MG, AT LUNCH AND SUPPER
     Route: 048
  6. GABAPENTIN [Concomitant]
     Indication: PRODUCT USED FOR UNKNOWN INDICATION
     Dosage: 600 MG, 4 TIMES DAILY
     Route: 048
  7. OMEPRAZOLE [Concomitant]
     Indication: PRODUCT USED FOR UNKNOWN INDICATION
     Dosage: 40 MG, TWICE A DAY (DELAYED RELEASE CAPSULE)
     Route: 048
  8. SYNTHROID [Concomitant]
     Indication: PRODUCT USED FOR UNKNOWN INDICATION
     Dosage: 25 MCG, DAILY [1 HOUR BEFORE BREAKFAST WITH NO OTHER MEDICATION]
     Route: 048
  9. LISINOPRIL AND HYDROCHLOROTHIAZIDE [Concomitant]
     Indication: PRODUCT USED FOR UNKNOWN INDICATION
     Dosage: 20MG/25 MG, DAILY
     Route: 048
  10. TOPROL-XL [Concomitant]
     Indication: PRODUCT USED FOR UNKNOWN INDICATION
     Dosage: 50 MG, DAILY
     Route: 048
  11. ACETAMINOPHEN [Concomitant]
     Indication: PAIN
     Dosage: 500 MG (2 TABS), QID (FOUR TIMES DAILY AS NEEDED)
     Route: 048
  12. ASPIRIN [Concomitant]
     Indication: PRODUCT USED FOR UNKNOWN INDICATION
     Dosage: 81 MG, DAILY (DELAYED RELEASE TABLET)
     Route: 048
  13. PROZAC [Concomitant]
     Indication: PRODUCT USED FOR UNKNOWN INDICATION
     Dosage: 80 MG, EVERY MORNING
     Route: 048
  14. SAPHRIS [Concomitant]
     Indication: AFFECTIVE DISORDER
     Dosage: 10 MG, (1 TABLET EVERY SUPPER X 1 WEEK THEN 2 TABS EVERY SUPPER)
     Route: 048
  15. TRAZODONE HCL [Concomitant]
     Indication: PRODUCT USED FOR UNKNOWN INDICATION
     Dosage: 450 MG, EVERY NIGHT AT BEDTIME
     Route: 048

REACTIONS (4)
  - VIRAL INFECTION [None]
  - ABDOMINAL PAIN [None]
  - VOMITING [None]
  - NAUSEA [None]
